FAERS Safety Report 17972820 (Version 1)
Quarter: 2020Q3

REPORT INFORMATION
  Report Type: Spontaneous
  Country: US (occurrence: US)
  Receive Date: 20200701
  Receipt Date: 20200701
  Transmission Date: 20201103
  Serious: Yes (Other)
  Sender: FDA-Public Use
  Company Number: None

PATIENT
  Age: 56 Year
  Sex: Female
  Weight: 67.5 kg

DRUGS (3)
  1. DICLOFENAC SOD EC 75 MG TABLET [Suspect]
     Active Substance: DICLOFENAC SODIUM
     Dosage: ?          QUANTITY:1 TABLET(S);?
     Route: 048
     Dates: start: 20200512, end: 20200514
  2. VITAMIN D [Concomitant]
     Active Substance: VITAMIN D NOS
  3. ZINC. [Concomitant]
     Active Substance: ZINC

REACTIONS (3)
  - Abdominal pain upper [None]
  - Gastrointestinal haemorrhage [None]
  - Internal haemorrhage [None]

NARRATIVE: CASE EVENT DATE: 20200514
